FAERS Safety Report 8379746-9 (Version None)
Quarter: 2012Q2

REPORT INFORMATION
  Report Type: 
  Country: None (occurrence: None)
  Receive Date: 20120523
  Receipt Date: 20120517
  Transmission Date: 20120825
  Serious: Yes (Hospitalization)
  Sender: FDA-Public Use
  Company Number: PHFR2012GB002123

PATIENT
  Sex: Male

DRUGS (8)
  1. CLOZARIL [Suspect]
     Indication: SCHIZOPHRENIA
     Dosage: 725 MG, DAILY
     Route: 048
     Dates: start: 20100201
  2. OMACOR [Concomitant]
     Indication: LIPIDS INCREASED
     Dosage: 5 CAPSULES
     Route: 048
  3. HALOPERIDOL [Concomitant]
     Indication: SCHIZOPHRENIA
     Dosage: 20 MG, DAILY
     Route: 048
     Dates: start: 20120501
  4. TIOCONAZOLE [Concomitant]
     Indication: ONYCHOMYCOSIS
     Dosage: 5 CAPSULES
     Route: 061
  5. LITHIUM CARBONATE [Concomitant]
     Indication: AFFECTIVE DISORDER
     Dosage: 1 MG, UNK
     Route: 048
  6. PROCYCLIDINE HYDROCHLORIDE 2MG TAB [Concomitant]
     Indication: EXTRAPYRAMIDAL DISORDER
     Dosage: 10 MG, DAILY
     Route: 048
  7. LORAZEPAM [Concomitant]
     Indication: SEDATIVE THERAPY
     Dosage: 1 MG, DAILY
     Route: 048
  8. LACTULOSE [Concomitant]
     Indication: CONSTIPATION
     Dosage: 30 ML DAILY
     Route: 048

REACTIONS (1)
  - BLOOD PRESSURE ABNORMAL [None]
